FAERS Safety Report 6584571-5 (Version None)
Quarter: 2010Q1

REPORT INFORMATION
  Report Type: 
  Country: None (occurrence: None)
  Receive Date: 20100217
  Receipt Date: 20100209
  Transmission Date: 20100710
  Serious: Yes (Other)
  Sender: FDA-Public Use
  Company Number: US-TEVA-217740USA

PATIENT
  Sex: Female

DRUGS (7)
  1. METHOTREXATE [Suspect]
     Indication: RHEUMATOID ARTHRITIS
     Dates: start: 20041201
  2. ABATACEPT [Suspect]
     Indication: RHEUMATOID ARTHRITIS
     Dates: start: 20080918
  3. PREDNISONE [Concomitant]
     Dates: start: 20080801
  4. NAPROXEN SODIUM [Concomitant]
  5. LEVOTHYROXINE SODIUM [Concomitant]
     Dates: start: 19510101
  6. FOLIC ACID [Concomitant]
     Dates: start: 20041201
  7. CALCIUM [Concomitant]
     Dates: start: 19920101

REACTIONS (1)
  - LUNG ADENOCARCINOMA [None]
